FAERS Safety Report 8582487-6 (Version None)
Quarter: 2012Q3

REPORT INFORMATION
  Report Type: 
  Country: None (occurrence: None)
  Receive Date: 20120809
  Receipt Date: 20120803
  Transmission Date: 20120928
  Serious: Yes (Hospitalization)
  Sender: FDA-Public Use
  Company Number: CH-ROCHE-1080857

PATIENT
  Sex: Female

DRUGS (7)
  1. AVASTIN [Suspect]
     Indication: NON-SMALL CELL LUNG CANCER
     Dosage: DATE OF LAST DOSE BEFORE SAE: 05/JUN/2012
     Route: 042
     Dates: start: 20110823
  2. CALCIUM [Concomitant]
  3. VITAMIN B-12 [Concomitant]
  4. CISPLATIN [Suspect]
     Indication: NON-SMALL CELL LUNG CANCER
     Dosage: DATE OF LAST DOSE PRIOR TO SAE: 25/OCT/2011
     Route: 042
     Dates: start: 20110823
  5. VITAMIN D [Concomitant]
  6. PEMETREXED DISODIUM [Suspect]
     Indication: NON-SMALL CELL LUNG CANCER
     Dosage: DATE OF LAST DOSE PRIOR TO SAE: 05/JUN/2012
     Route: 042
     Dates: start: 20110823
  7. FOLIC ACID [Concomitant]

REACTIONS (3)
  - CEREBELLAR SYNDROME [None]
  - VERTIGO [None]
  - BLOOD PRESSURE INCREASED [None]
